FAERS Safety Report 5326718-4 (Version None)
Quarter: 2007Q2

REPORT INFORMATION
  Report Type: 
  Country: None (occurrence: None)
  Receive Date: 20070516
  Receipt Date: 20070510
  Transmission Date: 20071010
  Serious: Yes (Hospitalization, Other)
  Sender: FDA-Public Use
  Company Number: US-BOEHRINGER INGELHEIM PHARMACEUTICALS, INC.-2007-BP-06579BP

PATIENT
  Sex: Female

DRUGS (3)
  1. VIRAMUNE [Suspect]
     Indication: HIV INFECTION
     Route: 048
     Dates: start: 19971030, end: 19971106
  2. DDI [Concomitant]
     Indication: HIV INFECTION
     Route: 048
     Dates: start: 19971030
  3. D4T [Concomitant]
     Indication: HIV INFECTION
     Route: 048
     Dates: start: 19971030

REACTIONS (6)
  - LIVER FUNCTION TEST ABNORMAL [None]
  - MENTAL STATUS CHANGES [None]
  - RASH ERYTHEMATOUS [None]
  - RASH GENERALISED [None]
  - RASH MACULAR [None]
  - THROMBOCYTOPENIA [None]
